APPROVED DRUG PRODUCT: DECADRON W/ XYLOCAINE
Active Ingredient: DEXAMETHASONE SODIUM PHOSPHATE; LIDOCAINE HYDROCHLORIDE
Strength: EQ 4MG PHOSPHATE/ML;10MG/ML
Dosage Form/Route: INJECTABLE;INJECTION
Application: N013334 | Product #002
Applicant: MERCK AND CO INC
Approved: Approved Prior to Jan 1, 1982 | RLD: No | RS: No | Type: DISCN